FAERS Safety Report 6405745-X (Version None)
Quarter: 2009Q4

REPORT INFORMATION
  Report Type: 
  Country: None (occurrence: None)
  Receive Date: 20091016
  Receipt Date: 20091016
  Transmission Date: 20100525
  Serious: Yes (Hospitalization)
  Sender: FDA-Public Use
  Company Number: None

PATIENT
  Sex: Male
  Weight: 64.6 kg

DRUGS (3)
  1. METHOTREXATE [Suspect]
     Dosage: 1810 MG
  2. PEG-L-ASPARAGINASE (K-H) [Suspect]
     Dosage: 8899.5 UNIT
  3. VINCRISTINE SULFATE [Suspect]
     Dosage: 10 MG

REACTIONS (10)
  - ACUTE PRERENAL FAILURE [None]
  - HERPES SIMPLEX [None]
  - HYPOPHAGIA [None]
  - MOUTH ULCERATION [None]
  - MUCOSAL INFLAMMATION [None]
  - NAUSEA [None]
  - ODYNOPHAGIA [None]
  - OROPHARYNGEAL PAIN [None]
  - SENSATION OF FOREIGN BODY [None]
  - VOMITING [None]
